FAERS Safety Report 13055040 (Version 3)
Quarter: 2017Q3

REPORT INFORMATION
  Report Type: Report from Study
  Country: CA (occurrence: CA)
  Receive Date: 20161222
  Receipt Date: 20170926
  Transmission Date: 20171127
  Serious: Yes (Other)
  Sender: FDA-Public Use
  Company Number: CA-GLAXOSMITHKLINE-CA2016GSK188809

PATIENT
  Sex: Female

DRUGS (1)
  1. SALBUTAMOL SULPHATE [Suspect]
     Active Substance: ALBUTEROL SULFATE
     Indication: PRODUCT USED FOR UNKNOWN INDICATION
     Dosage: UNK

REACTIONS (9)
  - Dysplasia [Unknown]
  - Weight increased [Unknown]
  - Depression [Unknown]
  - Osteoporosis [Unknown]
  - Thyroid disorder [Unknown]
  - Fungal infection [Unknown]
  - Dental caries [Unknown]
  - Sjogren^s syndrome [Unknown]
  - Aptyalism [Unknown]
